FAERS Safety Report 24380994 (Version 1)
Quarter: 2024Q3

REPORT INFORMATION
  Report Type: Report from Study
  Country: US (occurrence: US)
  Receive Date: 20240930
  Receipt Date: 20240930
  Transmission Date: 20241017
  Serious: Yes (Other)
  Sender: ABBVIE
  Company Number: US-ABBVIE-5847739

PATIENT
  Sex: Female

DRUGS (2)
  1. SKYRIZI [Suspect]
     Active Substance: RISANKIZUMAB-RZAA
     Indication: Psoriasis
     Dosage: FORM STRENGTH: 150 MG/ML WEEK 0
     Route: 058
     Dates: start: 20240530, end: 20240530
  2. SKYRIZI [Suspect]
     Active Substance: RISANKIZUMAB-RZAA
     Indication: Psoriatic arthropathy
     Dosage: FORM STRENGTH: 150 MG/ML WEEK 4
     Route: 058
     Dates: start: 20240627

REACTIONS (14)
  - Spinal fusion surgery [Unknown]
  - Pain [Not Recovered/Not Resolved]
  - Hyperhidrosis [Not Recovered/Not Resolved]
  - Oral fungal infection [Recovered/Resolved]
  - Fungal infection [Recovered/Resolved]
  - Rash [Unknown]
  - Nausea [Unknown]
  - Decreased appetite [Recovered/Resolved]
  - Arthralgia [Unknown]
  - Migraine [Unknown]
  - Dizziness [Unknown]
  - Vulvovaginal mycotic infection [Recovering/Resolving]
  - Pruritus [Recovering/Resolving]
  - Burning sensation [Recovering/Resolving]

NARRATIVE: CASE EVENT DATE: 20240101
